FAERS Safety Report 5257105-5 (Version None)
Quarter: 2007Q1

REPORT INFORMATION
  Report Type: 
  Country: None (occurrence: None)
  Receive Date: 20070302
  Receipt Date: 20070302
  Transmission Date: 20070707
  Serious: No
  Sender: FDA-Public Use
  Company Number: None

PATIENT
  Age: 73 Year
  Sex: Female
  Weight: 83.0083 kg

DRUGS (1)
  1. CYPHER SIROLIMUS-ELUTING CORONARY STENT DRUG-ELUTING STENT [Suspect]

REACTIONS (3)
  - COMPLICATION OF DEVICE INSERTION [None]
  - PHARMACEUTICAL PRODUCT COMPLAINT [None]
  - PROCEDURAL COMPLICATION [None]
